FAERS Safety Report 7183633-1 (Version None)
Quarter: 2010Q4

REPORT INFORMATION
  Report Type: 
  Country: None (occurrence: None)
  Receive Date: 20101220
  Receipt Date: 20101220
  Transmission Date: 20110411
  Serious: Yes (Hospitalization)
  Sender: FDA-Public Use
  Company Number: None

PATIENT
  Age: 87 Year
  Sex: Male
  Weight: 91 kg

DRUGS (15)
  1. ASPIRIN [Suspect]
     Dosage: 81MG DAILY PO
     Route: 048
  2. PLAVIX [Suspect]
     Dosage: 75MG DAILY PO
     Route: 048
  3. FINASTERIDE [Concomitant]
  4. TYLENOL [Concomitant]
  5. LISINOPRIL [Concomitant]
  6. PROTONIX [Concomitant]
  7. COREG [Concomitant]
  8. LIPITOR [Concomitant]
  9. NORVASC [Concomitant]
  10. TERAZOSIN HCL [Concomitant]
  11. REGLAN [Concomitant]
  12. ATIVAN [Concomitant]
  13. INSULIN [Concomitant]
  14. GLIPIZIDE [Concomitant]
  15. IMODIUM [Concomitant]

REACTIONS (3)
  - FALL [None]
  - LACERATION [None]
  - SUBDURAL HAEMATOMA [None]
